FAERS Safety Report 5136954-8 (Version None)
Quarter: 2006Q4

REPORT INFORMATION
  Report Type: 
  Country: None (occurrence: None)
  Receive Date: 20061023
  Receipt Date: 20061005
  Transmission Date: 20070319
  Serious: Yes (Other)
  Sender: FDA-Public Use
  Company Number: C-06-004M

PATIENT
  Age: 30 Month
  Sex: Male

DRUGS (2)
  1. CYSTADANE [Suspect]
     Indication: HOMOCYSTINURIA
     Dosage: 1 DAY/ORAL
     Route: 048
  2. PYRIDOXINE HCL [Concomitant]

REACTIONS (4)
  - BRAIN STEM SYNDROME [None]
  - DECREASED APPETITE [None]
  - NUCLEAR MAGNETIC RESONANCE IMAGING BRAIN ABNORMAL [None]
  - SOMNOLENCE [None]
